FAERS Safety Report 10192632 (Version 2)
Quarter: 2014Q3

REPORT INFORMATION
  Report Type: Report from Study
  Country: GB (occurrence: GB)
  Receive Date: 20140523
  Receipt Date: 20140724
  Transmission Date: 20150326
  Serious: Yes (Hospitalization)
  Sender: FDA-Public Use
  Company Number: GB-ASTRAZENECA-2014SE35416

PATIENT
  Age: 23760 Day
  Sex: Male

DRUGS (15)
  1. AZD6140 [Suspect]
     Active Substance: TICAGRELOR
     Indication: CORONARY ARTERY DISEASE
     Route: 048
     Dates: start: 20111102, end: 20111221
  2. AZD6140 [Suspect]
     Active Substance: TICAGRELOR
     Indication: CORONARY ARTERY DISEASE
     Route: 048
     Dates: start: 20120403, end: 20120425
  3. HYDROCORTISONE, MICONAZOLE [Concomitant]
     Indication: DRY SKIN
     Dosage: 1%+2%
     Route: 061
  4. HYPROMELLOSE [Concomitant]
     Active Substance: HYPROMELLOSES
     Indication: DRY EYE
     Route: 061
     Dates: start: 20111025
  5. ATENOLOL. [Concomitant]
     Active Substance: ATENOLOL
     Indication: MYOCARDIAL ISCHAEMIA
     Route: 048
     Dates: end: 20120116
  6. PARETAMOL [Concomitant]
     Indication: PAIN
     Dosage: PRN
     Route: 048
  7. AZD6140 [Suspect]
     Active Substance: TICAGRELOR
     Indication: CORONARY ARTERY DISEASE
     Route: 048
     Dates: start: 20120313, end: 20120326
  8. CANDESARTAN [Concomitant]
     Active Substance: CANDESARTAN
     Indication: HYPERTENSION
     Route: 048
  9. VENLAFLAXINE [Concomitant]
     Indication: DEPRESSION
     Route: 048
  10. ATORVASTATIN [Concomitant]
     Active Substance: ATORVASTATIN
     Indication: HYPERLIPIDAEMIA
     Route: 048
  11. ASA [Concomitant]
     Active Substance: ASPIRIN
     Route: 048
     Dates: start: 20130212, end: 20130212
  12. TOLTERODINE M/R [Concomitant]
     Indication: POLLAKIURIA
     Route: 048
  13. MOVICOL [Concomitant]
     Active Substance: POLYETHYLENE GLYCOL 3350\POTASSIUM CHLORIDE\SODIUM BICARBONATE\SODIUM CHLORIDE
     Indication: HAEMORRHOIDS
     Route: 048
  14. ASA [Concomitant]
     Active Substance: ASPIRIN
     Route: 048
     Dates: end: 20121016
  15. ASA [Concomitant]
     Active Substance: ASPIRIN
     Route: 048
     Dates: start: 20121018

REACTIONS (1)
  - Supraventricular tachycardia [Recovered/Resolved]

NARRATIVE: CASE EVENT DATE: 20111221
